FAERS Safety Report 5423302-9 (Version None)
Quarter: 2007Q3

REPORT INFORMATION
  Report Type: 
  Country: None (occurrence: None)
  Receive Date: 20070823
  Receipt Date: 20070821
  Transmission Date: 20080115
  Serious: Yes (Death)
  Sender: FDA-Public Use
  Company Number: PHBS2007PH13875

PATIENT
  Age: 55 Year
  Sex: Female

DRUGS (4)
  1. ZELNORM [Suspect]
     Indication: DIABETIC NEPHROPATHY
     Dosage: UNK, TID
     Route: 065
  2. METFORMIN HCL [Concomitant]
  3. DIOVAN [Concomitant]
  4. SIMVASTATIN [Concomitant]

REACTIONS (1)
  - MYOCARDIAL INFARCTION [None]
